FAERS Safety Report 9171425 (Version 3)
Quarter: 2013Q1

REPORT INFORMATION
  Report Type: Spontaneous
  Country: US (occurrence: None)
  Receive Date: 20130305
  Receipt Date: 20130329
  Transmission Date: 20140127
  Serious: Yes (Other)
  Sender: FDA-Public Use
  Company Number: 2013034881

PATIENT
  Age: 61 Year
  Sex: Female

DRUGS (3)
  1. HIZENTRA [Suspect]
  2. ARALAST [Suspect]
  3. LASIX [Concomitant]

REACTIONS (4)
  - Fatigue [None]
  - Sinusitis [None]
  - Joint swelling [None]
  - Inappropriate schedule of drug administration [None]
